FAERS Safety Report 9125056 (Version 1)
Quarter: 2013Q1

REPORT INFORMATION
  Report Type: Report from Study
  Country: FR (occurrence: FR)
  Receive Date: 20130227
  Receipt Date: 20130227
  Transmission Date: 20140127
  Serious: Yes (Death, Other)
  Sender: FDA-Public Use
  Company Number: FR-CELGENEUS-056-C4047-11031559

PATIENT
  Sex: 0

DRUGS (4)
  1. CC-4047 [Suspect]
     Indication: PLASMA CELL MYELOMA
     Dosage: 4 MILLIGRAM
     Route: 048
  2. CC-4047 [Suspect]
     Dosage: 4 MILLIGRAM
     Route: 048
  3. DEXAMETHASONE [Suspect]
     Indication: PLASMA CELL MYELOMA
     Route: 048
  4. ANTITHROMBOTIC AGENTS [Concomitant]
     Indication: THROMBOSIS PROPHYLAXIS
     Route: 065

REACTIONS (14)
  - Death [Fatal]
  - Bone marrow failure [Unknown]
  - Neutropenia [Unknown]
  - Thrombocytopenia [Unknown]
  - Anaemia [Unknown]
  - Renal failure [Unknown]
  - Deep vein thrombosis [Unknown]
  - Plasma cell myeloma [Unknown]
  - Pneumonia [Unknown]
  - Bone pain [Unknown]
  - Dyspnoea [Unknown]
  - Asthenia [Unknown]
  - General physical health deterioration [Unknown]
  - Bronchitis [Unknown]
